FAERS Safety Report 9407232 (Version 1)
Quarter: 2013Q3

REPORT INFORMATION
  Report Type: Spontaneous
  Country: JP (occurrence: None)
  Receive Date: 20130716
  Receipt Date: 20130716
  Transmission Date: 20140515
  Serious: Yes (Other)
  Sender: FDA-Public Use
  Company Number: SYM02013-05972

PATIENT
  Age: 59 Year
  Sex: Female

DRUGS (6)
  1. FLUOROURACIL (FLUOROURACIL) (SOLUTION FOR INFUSION) (FLUOROURACIL) [Suspect]
     Indication: CERVIX CARCINOMA
     Dosage: INTRAVENOUS, (NOT OTHERWISE SPECIFIED)?
     Route: 042
  2. FLUOROURACIL (FLUOROURACIL) (SOLUTION FOR INFUSION) (FLUOROURACIL) [Suspect]
     Indication: ANAL SQUAMOUS CELL CARCINOMA
     Dosage: INTRAVENOUS, (NOT OTHERWISE SPECIFIED)?
     Route: 042
  3. MITOMYCIN C [Suspect]
     Indication: CERVIX CARCINOMA
     Dosage: EVERY CYCLE, INTRAVENOUS (NOT OTHERWISE SPECIFIED)
  4. MITOMYCIN C [Suspect]
     Indication: ANAL SQUAMOUS CELL CARCINOMA
     Dosage: EVERY CYCLE, INTRAVENOUS (NOT OTHERWISE SPECIFIED)
  5. THERAPEUTIC RADIOPHARMACEUTICALS (THERAPEUTIC RADIOPHARMACEUTICALS) [Suspect]
     Indication: CERVIX CARCINOMA
  6. THERAPEUTIC RADIOPHARMACEUTICALS (THERAPEUTIC RADIOPHARMACEUTICALS) [Suspect]
     Indication: ANAL SQUAMOUS CELL CARCINOMA

REACTIONS (3)
  - White blood cell count decreased [None]
  - Platelet count decreased [None]
  - Cystitis [None]
